FAERS Safety Report 7585718-4 (Version None)
Quarter: 2011Q2

REPORT INFORMATION
  Report Type: 
  Country: None (occurrence: None)
  Receive Date: 20110629
  Receipt Date: 20110629
  Transmission Date: 20111010
  Serious: No
  Sender: FDA-Public Use
  Company Number: None

PATIENT
  Age: 76 Year
  Sex: Female
  Weight: 67.586 kg

DRUGS (1)
  1. PRED FORTE [Suspect]
     Dosage: 1 DROP 4 TIMES A DAY
     Route: 047
     Dates: start: 20110602, end: 20110605

REACTIONS (3)
  - INCREASED UPPER AIRWAY SECRETION [None]
  - OROPHARYNGEAL PAIN [None]
  - PRODUCTIVE COUGH [None]
